FAERS Safety Report 7269629-X (Version None)
Quarter: 2011Q1

REPORT INFORMATION
  Report Type: 
  Country: None (occurrence: None)
  Receive Date: 20110124
  Receipt Date: 20110112
  Transmission Date: 20110831
  Serious: Yes (Other)
  Sender: FDA-Public Use
  Company Number: US-ACCORD-007834

PATIENT
  Age: 67 Year
  Sex: Female

DRUGS (7)
  1. ROPINIROLE [Concomitant]
  2. LISINOPRIL [Concomitant]
  3. SIMVASTATIN [Suspect]
     Indication: HYPERCHOLESTEROLAEMIA
     Dosage: 40.00 MG, 1.00 PER 1.0 DAYS; ORAL
     Route: 048
     Dates: start: 20110111, end: 20110111
  4. FEXOFENADINE [Concomitant]
  5. ACTOS [Concomitant]
  6. LANSOPRAZOLE [Concomitant]
  7. ALENDRONAE SODIUM [Concomitant]

REACTIONS (5)
  - REACTION TO DRUG EXCIPIENTS [None]
  - PRODUCT QUALITY ISSUE [None]
  - MALAISE [None]
  - ABDOMINAL DISCOMFORT [None]
  - PHARYNGEAL OEDEMA [None]
